FAERS Safety Report 4928715-7 (Version None)
Quarter: 2006Q1

REPORT INFORMATION
  Report Type: 
  Country: None (occurrence: None)
  Receive Date: 20060301
  Receipt Date: 20060221
  Transmission Date: 20060701
  Serious: Yes (Other)
  Sender: FDA-Public Use
  Company Number: US-JNJFOC-20041100140

PATIENT
  Sex: Male
  Weight: 63.5 kg

DRUGS (13)
  1. REMICADE [Suspect]
     Dosage: ONE FOR ONE YEAR.
     Route: 042
  2. REMICADE [Suspect]
     Route: 042
  3. REMICADE [Suspect]
     Route: 042
  4. REMICADE [Suspect]
     Indication: CROHN'S DISEASE
     Route: 042
  5. VITAMINS [Concomitant]
  6. PREVACID [Concomitant]
  7. ALPRAZOLAM [Concomitant]
     Indication: TREMOR
  8. ASACOL [Concomitant]
     Indication: CROHN'S DISEASE
  9. PLAQUENIL [Concomitant]
     Indication: CROHN'S DISEASE
  10. PREDNISONE [Concomitant]
  11. PREDNISONE [Concomitant]
     Indication: PREMEDICATION
  12. PREDNISONE [Concomitant]
     Indication: CROHN'S DISEASE
  13. BENADRYL [Concomitant]
     Indication: PREMEDICATION

REACTIONS (13)
  - ANAEMIA [None]
  - BACK PAIN [None]
  - BACTERIA BLOOD IDENTIFIED [None]
  - BURNING SENSATION [None]
  - CATARACT [None]
  - CHILLS [None]
  - DYSPNOEA [None]
  - ECZEMA [None]
  - INFUSION RELATED REACTION [None]
  - PRURITUS [None]
  - SENSORY DISTURBANCE [None]
  - STAPHYLOCOCCAL INFECTION [None]
  - URTICARIA [None]
